FAERS Safety Report 23733600 (Version 2)
Quarter: 2025Q1

REPORT INFORMATION
  Report Type: Spontaneous
  Country: JP (occurrence: JP)
  Receive Date: 20240411
  Receipt Date: 20250127
  Transmission Date: 20250409
  Serious: Yes (Other)
  Sender: NOVARTIS
  Company Number: JP-002147023-NVSJ2024JP004203

PATIENT
  Age: 74 Year
  Sex: Male

DRUGS (1)
  1. NILOTINIB [Suspect]
     Active Substance: NILOTINIB
     Indication: Chronic myeloid leukaemia
     Route: 048

REACTIONS (4)
  - Carotid artery stenosis [Recovering/Resolving]
  - Cerebral artery stenosis [Recovering/Resolving]
  - Cerebral infarction [Recovering/Resolving]
  - Gait disturbance [Unknown]
